FAERS Safety Report 17622725 (Version 2)
Quarter: 2020Q2

REPORT INFORMATION
  Report Type: Spontaneous
  Country: US (occurrence: US)
  Receive Date: 20200403
  Receipt Date: 20200416
  Transmission Date: 20200713
  Serious: Yes (Hospitalization)
  Sender: FDA-Public Use
  Company Number: US-PERRIGO-18US016159

PATIENT
  Age: 43 Year
  Sex: Male

DRUGS (12)
  1. PREVACID 24 HR [Suspect]
     Active Substance: LANSOPRAZOLE
     Indication: GASTROOESOPHAGEAL REFLUX DISEASE
     Dosage: 30 MG, UNK
     Route: 048
     Dates: start: 20041215
  2. PRILOSEC [Suspect]
     Active Substance: OMEPRAZOLE MAGNESIUM
     Indication: GASTROOESOPHAGEAL REFLUX DISEASE
     Dosage: UNK, UNK
     Route: 048
     Dates: start: 1990, end: 2004
  3. NEXIUM [Suspect]
     Active Substance: ESOMEPRAZOLE MAGNESIUM
     Dosage: 30 MG, UNK
     Route: 048
     Dates: start: 2006, end: 2016
  4. NEXIUM [Suspect]
     Active Substance: ESOMEPRAZOLE MAGNESIUM
     Dosage: 40 MG, QD
     Route: 048
     Dates: start: 20080910, end: 20101006
  5. NEXIUM [Suspect]
     Active Substance: ESOMEPRAZOLE MAGNESIUM
     Indication: GASTROOESOPHAGEAL REFLUX DISEASE
     Dosage: UNK, UNK
     Route: 048
     Dates: start: 20060911, end: 20070711
  6. OMEPRAZOLE. [Suspect]
     Active Substance: OMEPRAZOLE
     Indication: PRODUCT USED FOR UNKNOWN INDICATION
     Dosage: 40 MG, QD
     Route: 048
     Dates: start: 2004, end: 2017
  7. OMEPRAZOLE. [Suspect]
     Active Substance: OMEPRAZOLE
     Dosage: 40 MG, QD
     Route: 048
  8. PRILOSEC [Suspect]
     Active Substance: OMEPRAZOLE MAGNESIUM
     Dosage: 20 MG, QD
     Route: 048
     Dates: start: 20041115, end: 20181204
  9. PRILOSEC [Suspect]
     Active Substance: OMEPRAZOLE MAGNESIUM
     Dosage: 20MG, QD
     Route: 048
     Dates: start: 20171013, end: 20171216
  10. PREVACID [Suspect]
     Active Substance: LANSOPRAZOLE
     Indication: GASTROOESOPHAGEAL REFLUX DISEASE
     Dosage: 30 MG, UNK
     Route: 048
     Dates: start: 20040422, end: 20081212
  11. PREVACID 24 HR [Suspect]
     Active Substance: LANSOPRAZOLE
     Dosage: 30 MG, UNK
     Route: 048
     Dates: start: 2009, end: 2009
  12. NEXIUM [Suspect]
     Active Substance: ESOMEPRAZOLE MAGNESIUM
     Dosage: 40 MG, QD
     Route: 048
     Dates: start: 20160825, end: 20161014

REACTIONS (13)
  - Renal cyst [Unknown]
  - Blood creatinine increased [Unknown]
  - Nocturia [Unknown]
  - Hyperuricosuria [Unknown]
  - Kidney infection [Unknown]
  - Pollakiuria [Unknown]
  - Urinary hesitation [Unknown]
  - Chronic kidney disease [Unknown]
  - Dehydration [Unknown]
  - Nephropathy [Unknown]
  - Dysuria [Unknown]
  - Nephrolithiasis [Unknown]
  - Renal failure [Unknown]

NARRATIVE: CASE EVENT DATE: 2016
